FAERS Safety Report 4532007-8 (Version None)
Quarter: 2004Q4

REPORT INFORMATION
  Report Type: 
  Country: None (occurrence: None)
  Receive Date: 20041217
  Receipt Date: 20041122
  Transmission Date: 20050328
  Serious: Yes (Hospitalization)
  Sender: FDA-Public Use
  Company Number: 210957

PATIENT
  Age: 43 Year
  Sex: Female
  Weight: 85.3 kg

DRUGS (10)
  1. RITUXAN [Suspect]
     Indication: SYSTEMIC LUPUS ERYTHEMATOSUS
     Dates: start: 20040105, end: 20040126
  2. METOPROLOL TARTRATE [Concomitant]
  3. FOLATE (FOLATE SODIUM) [Concomitant]
  4. MAXZIDE [Concomitant]
  5. GLYBURIDE [Concomitant]
  6. PREDNISONE [Concomitant]
  7. OS-CAL +D (CHOLECALCIFEROL, CALCIUM NOS) [Concomitant]
  8. LISINOPRIL [Concomitant]
  9. LANSOPRAZOLE [Concomitant]
  10. FLEXERIL [Concomitant]

REACTIONS (10)
  - ACTIVATED PARTIAL THROMBOPLASTIN TIME PROLONGED [None]
  - ANTIPHOSPHOLIPID SYNDROME [None]
  - CARDIOLIPIN ANTIBODY POSITIVE [None]
  - FIBRIN D DIMER INCREASED [None]
  - LEUKOPENIA [None]
  - MENINGITIS [None]
  - PANCREATITIS ACUTE [None]
  - PLATELET COUNT INCREASED [None]
  - PULMONARY EMBOLISM [None]
  - RUSSELL'S VIPER VENOM TIME ABNORMAL [None]
